FAERS Safety Report 5819238-1 (Version None)
Quarter: 2008Q3

REPORT INFORMATION
  Report Type: 
  Country: None (occurrence: None)
  Receive Date: 20080721
  Receipt Date: 20080721
  Transmission Date: 20090109
  Serious: No
  Sender: FDA-Public Use
  Company Number: None

PATIENT
  Age: 65 Year
  Sex: Male
  Weight: 88.4514 kg

DRUGS (1)
  1. GENTAMICIN [Suspect]
     Indication: ENDOCARDITIS HAEMOPHILUS
     Dosage: 160MG EVERY 12 HR IV DRIP, DAILY
     Route: 041
     Dates: start: 20051108, end: 20051223

REACTIONS (1)
  - VESTIBULAR DISORDER [None]
